FAERS Safety Report 15405876 (Version 4)
Quarter: 2020Q1

REPORT INFORMATION
  Report Type: Spontaneous
  Country: IT (occurrence: IT)
  Receive Date: 20180920
  Receipt Date: 20200229
  Transmission Date: 20200409
  Serious: Yes (Hospitalization, Other)
  Sender: FDA-Public Use
  Company Number: IT-AUROBINDO-AUR-APL-2018-046695

PATIENT
  Age: 20 Year
  Sex: Female

DRUGS (5)
  1. ESTRADIOLO [Concomitant]
     Active Substance: ESTRADIOL
     Indication: PRODUCT USED FOR UNKNOWN INDICATION
     Dosage: 1 DOSAGE FORM
     Route: 048
  2. QUETIAPINE. [Suspect]
     Active Substance: QUETIAPINE
     Indication: PERSONALITY DISORDER
     Dosage: 1500 MILLIGRAM, TOTAL DOSE
     Route: 048
     Dates: start: 20180826, end: 20180826
  3. DEPAKIN [Suspect]
     Active Substance: VALPROATE SODIUM
     Indication: MANIA
     Dosage: 10 DOSAGE FORM, IN TOTAL
     Route: 048
     Dates: start: 20180826, end: 20180826
  4. OMEPRAZOLE. [Concomitant]
     Active Substance: OMEPRAZOLE
     Indication: PRODUCT USED FOR UNKNOWN INDICATION
     Dosage: UNK
     Route: 065
  5. DYDROGESTERONE;ESTRADIOL [Concomitant]
     Indication: PRODUCT USED FOR UNKNOWN INDICATION
     Dosage: 1 DOSAGE FORM
     Route: 048

REACTIONS (5)
  - Drug abuse [Recovered/Resolved]
  - Sopor [Recovered/Resolved]
  - Sluggishness [Recovered/Resolved]
  - Tachycardia [Recovered/Resolved]
  - Intentional self-injury [Recovered/Resolved]

NARRATIVE: CASE EVENT DATE: 20180826
